FAERS Safety Report 21439318 (Version 1)
Quarter: 2022Q4

REPORT INFORMATION
  Report Type: Report from Study
  Country: US (occurrence: US)
  Receive Date: 20221011
  Receipt Date: 20221011
  Transmission Date: 20230112
  Serious: Yes (Hospitalization, Other)
  Sender: FDA-Public Use
  Company Number: US-MYLANLABS-2022M1112595

PATIENT
  Age: 71 Year
  Sex: Female

DRUGS (3)
  1. SILDENAFIL [Suspect]
     Active Substance: SILDENAFIL
     Indication: Blood pressure systolic increased
     Dosage: UNK
     Route: 065
  2. TYVASO [Suspect]
     Active Substance: TREPROSTINIL
     Indication: Pulmonary arterial hypertension
     Dosage: 96 MICROGRAM, QID (16 BREATHS INHALED)
     Dates: start: 20200123
  3. TYVASO [Suspect]
     Active Substance: TREPROSTINIL
     Dosage: 72 MICROGRAM, QID (12 BREATHS)

REACTIONS (8)
  - Loss of consciousness [Not Recovered/Not Resolved]
  - Fall [Recovered/Resolved with Sequelae]
  - Syncope [Not Recovered/Not Resolved]
  - Fracture [Not Recovered/Not Resolved]
  - Balance disorder [Unknown]
  - Speech disorder [Unknown]
  - Dizziness [Unknown]
  - Hypotension [Unknown]

NARRATIVE: CASE EVENT DATE: 20220701
